FAERS Safety Report 4647933-9 (Version None)
Quarter: 2005Q2

REPORT INFORMATION
  Report Type: 
  Country: None (occurrence: None)
  Receive Date: 20050426
  Receipt Date: 20050426
  Transmission Date: 20051028
  Serious: Yes (Death)
  Sender: FDA-Public Use
  Company Number: None

PATIENT
  Age: 79 Year
  Sex: Female
  Weight: 72.1219 kg

DRUGS (5)
  1. LOVENOX [Suspect]
     Indication: ATRIAL FIBRILLATION
     Dosage: 72.5 MG Q12H  6 DOSES
     Dates: start: 20050104, end: 20050107
  2. IRBESARTAN [Concomitant]
  3. ZETIA [Concomitant]
  4. PROPAFENONE [Concomitant]
  5. ESTROPIPATE [Concomitant]

REACTIONS (3)
  - BRAIN HERNIATION [None]
  - LOSS OF CONSCIOUSNESS [None]
  - SUBDURAL HAEMATOMA [None]
